FAERS Safety Report 8407825-6 (Version None)
Quarter: 2012Q2

REPORT INFORMATION
  Report Type: 
  Country: None (occurrence: None)
  Receive Date: 20120604
  Receipt Date: 20120524
  Transmission Date: 20120825
  Serious: Yes (Other)
  Sender: FDA-Public Use
  Company Number: FR-BRISTOL-MYERS SQUIBB COMPANY-16639593

PATIENT
  Age: 75 Year
  Sex: Female
  Weight: 65 kg

DRUGS (4)
  1. GLUCOPHAGE [Suspect]
     Indication: TYPE 2 DIABETES MELLITUS
     Route: 048
     Dates: start: 20050101
  2. METHOTREXATE [Suspect]
     Indication: RHEUMATOID ARTHRITIS
     Route: 048
     Dates: start: 20060401
  3. REMICADE [Suspect]
     Indication: RHEUMATOID ARTHRITIS
     Dosage: POWDER OF INJECTION
     Route: 042
     Dates: start: 20060401, end: 20120227
  4. CELEBREX [Suspect]
     Dosage: DOSAGE STRENGTH: 200MG , CAPSULE
     Route: 048
     Dates: start: 20060401

REACTIONS (1)
  - CONGESTIVE CARDIOMYOPATHY [None]
